FAERS Safety Report 18803509 (Version 1)
Quarter: 2021Q1

REPORT INFORMATION
  Report Type: Spontaneous
  Country: US (occurrence: US)
  Receive Date: 20210128
  Receipt Date: 20210128
  Transmission Date: 20210419
  Serious: Yes (Life-Threatening, Hospitalization)
  Sender: FDA-Public Use
  Company Number: US-TEVA-2021-US-1872141

PATIENT
  Age: 43 Year
  Sex: Female

DRUGS (4)
  1. EPINEPHRINE. [Suspect]
     Active Substance: EPINEPHRINE
     Indication: VENTRICULAR TACHYCARDIA
     Route: 065
  2. SOTALOL. [Suspect]
     Active Substance: SOTALOL
     Indication: OVERDOSE
     Route: 048
  3. EPINEPHRINE. [Suspect]
     Active Substance: EPINEPHRINE
     Indication: TORSADE DE POINTES
  4. RIVAROXABAN [Suspect]
     Active Substance: RIVAROXABAN
     Indication: OVERDOSE
     Route: 048

REACTIONS (6)
  - Torsade de pointes [Recovered/Resolved]
  - International normalised ratio increased [Recovered/Resolved]
  - Treatment failure [Unknown]
  - Cardiotoxicity [Recovered/Resolved]
  - Overdose [Recovered/Resolved]
  - Ventricular tachycardia [Recovered/Resolved]
